FAERS Safety Report 14963233 (Version 1)
Quarter: 2018Q2

REPORT INFORMATION
  Report Type: Report from Study
  Country: US (occurrence: US)
  Receive Date: 20180601
  Receipt Date: 20180601
  Transmission Date: 20180711
  Serious: Yes (Hospitalization)
  Sender: FDA-Public Use
  Company Number: US-GILEAD-2018-0341416

PATIENT
  Age: 16 Year
  Sex: Female

DRUGS (1)
  1. AMBRISENTAN [Suspect]
     Active Substance: AMBRISENTAN
     Indication: HEART DISEASE CONGENITAL
     Dosage: 10 MG, QD
     Route: 048
     Dates: start: 201707

REACTIONS (2)
  - Gastritis [Not Recovered/Not Resolved]
  - Off label use [Not Recovered/Not Resolved]
